FAERS Safety Report 15094286 (Version 2)
Quarter: 2018Q3

REPORT INFORMATION
  Report Type: Report from Study
  Country: IT (occurrence: IT)
  Receive Date: 20180630
  Receipt Date: 20180723
  Transmission Date: 20181010
  Serious: Yes (Hospitalization)
  Sender: FDA-Public Use
  Company Number: IT-TEVA-2018-IT-917471

PATIENT
  Age: 83 Year
  Sex: Female

DRUGS (6)
  1. PRADAXA 110?MG HARD CAPSULES [Concomitant]
     Route: 065
  2. BISOPROLOL HEMIFUMARATE [Concomitant]
     Active Substance: BISOPROLOL FUMARATE
  3. ZOLPIDEM [Suspect]
     Active Substance: ZOLPIDEM\ZOLPIDEM TARTRATE
     Route: 048
     Dates: start: 20171221, end: 20171221
  4. LASIX [Concomitant]
     Active Substance: FUROSEMIDE
     Route: 065
  5. ALLOPURINOL. [Concomitant]
     Active Substance: ALLOPURINOL
  6. EUTIROX 50 MICROGRAMMI COMPRESSE [Concomitant]

REACTIONS (2)
  - Respiration abnormal [Recovered/Resolved]
  - Sopor [Recovered/Resolved]

NARRATIVE: CASE EVENT DATE: 20171222
